FAERS Safety Report 13839825 (Version 1)
Quarter: 2017Q3

REPORT INFORMATION
  Report Type: Spontaneous
  Country: US (occurrence: US)
  Receive Date: 20170805
  Receipt Date: 20170805
  Transmission Date: 20171127
  Serious: No
  Sender: FDA-Public Use
  Company Number: None

PATIENT
  Age: 78 Year
  Sex: Female

DRUGS (9)
  1. VALACYCLOVIR [Suspect]
     Active Substance: VALACYCLOVIR HYDROCHLORIDE
     Indication: HERPES ZOSTER
     Dosage: DOSE - 500 MG
     Route: 048
     Dates: start: 20170119
  2. ATORVASTATIN [Concomitant]
     Active Substance: ATORVASTATIN
  3. CARVEDILOL. [Concomitant]
     Active Substance: CARVEDILOL
  4. BENZONATATE. [Concomitant]
     Active Substance: BENZONATATE
  5. GABAPENTIN. [Suspect]
     Active Substance: GABAPENTIN
     Dosage: DOSE - 100 MG
     Route: 048
  6. BISACODYL. [Concomitant]
     Active Substance: BISACODYL
  7. DILTIAZEM. [Concomitant]
     Active Substance: DILTIAZEM
  8. INSULIN ASPART [Concomitant]
     Active Substance: INSULIN ASPART
  9. INSULIN DETEMIR [Concomitant]
     Active Substance: INSULIN DETEMIR

REACTIONS (5)
  - Fall [None]
  - Mental status changes [None]
  - Neuralgia [None]
  - Treatment noncompliance [None]
  - Hallucination [None]

NARRATIVE: CASE EVENT DATE: 20170120
